FAERS Safety Report 9070403 (Version 1)
Quarter: 2013Q1

REPORT INFORMATION
  Report Type: Spontaneous
  Country: US (occurrence: US)
  Receive Date: 20130215
  Receipt Date: 20130215
  Transmission Date: 20140127
  Serious: Yes (Other)
  Sender: FDA-Public Use
  Company Number: CHPA2013US002848

PATIENT
  Sex: Male

DRUGS (1)
  1. THERAPEUTIC MINERAL ICE [Suspect]
     Indication: PAIN
     Dosage: PROBABLY A TSP, UNK
     Route: 061
     Dates: start: 20130108, end: 20130108

REACTIONS (14)
  - Loss of consciousness [Not Recovered/Not Resolved]
  - Lethargy [Not Recovered/Not Resolved]
  - Amnesia [Recovered/Resolved]
  - Movement disorder [Recovered/Resolved]
  - Speech disorder [Recovered/Resolved]
  - Mania [Unknown]
  - Somnolence [Not Recovered/Not Resolved]
  - Hyperhidrosis [Recovered/Resolved]
  - Feeling cold [Recovered/Resolved]
  - Gait disturbance [Recovered/Resolved]
  - Vomiting [Recovered/Resolved]
  - Muscle twitching [Unknown]
  - Nausea [Unknown]
  - Expired drug administered [Unknown]
